FAERS Safety Report 17015000 (Version 1)
Quarter: 2019Q4

REPORT INFORMATION
  Report Type: Spontaneous
  Country: UA (occurrence: UA)
  Receive Date: 20191111
  Receipt Date: 20191111
  Transmission Date: 20200122
  Serious: Yes (Hospitalization)
  Sender: FDA-Public Use
  Company Number: NVSC2019UA028305

PATIENT
  Age: 17 Year
  Sex: Female

DRUGS (1)
  1. AMLODIPINE [Suspect]
     Active Substance: AMLODIPINE BESYLATE
     Indication: PRODUCT USED FOR UNKNOWN INDICATION
     Dosage: 90 MG
     Route: 048

REACTIONS (11)
  - Pallor [Recovered/Resolved]
  - Hyperglycaemia [Recovered/Resolved]
  - Limb discomfort [Recovered/Resolved]
  - Altered state of consciousness [Recovered/Resolved]
  - Blood pressure decreased [Recovered/Resolved]
  - Poisoning [Recovered/Resolved]
  - Haematemesis [Recovered/Resolved]
  - Toxicity to various agents [Recovered/Resolved]
  - Haemodynamic instability [Recovered/Resolved]
  - Non-cardiogenic pulmonary oedema [Recovered/Resolved]
  - Abdominal pain [Recovered/Resolved]
